FAERS Safety Report 8479566-0 (Version None)
Quarter: 2012Q2

REPORT INFORMATION
  Report Type: 
  Country: None (occurrence: None)
  Receive Date: 20120629
  Receipt Date: 20120618
  Transmission Date: 20120825
  Serious: Yes (Hospitalization, Other)
  Sender: FDA-Public Use
  Company Number: JP-VERTEX PHARMACEUTICALS INC.-AE-2012-008713

PATIENT
  Age: 55 Year
  Sex: Female

DRUGS (11)
  1. ZOLPIDEM [Concomitant]
     Route: 048
     Dates: start: 20120517, end: 20120531
  2. PEGINTERFERON ALFA-2B [Concomitant]
     Route: 058
     Dates: start: 20120517, end: 20120531
  3. NITRAZEPAM [Concomitant]
     Route: 048
  4. RHYTHMY [Concomitant]
     Route: 048
  5. RIBAVIRIN [Concomitant]
     Route: 048
     Dates: start: 20120517, end: 20120523
  6. RIBAVIRIN [Concomitant]
     Route: 048
     Dates: start: 20120524, end: 20120606
  7. DEPAKENE [Concomitant]
     Route: 048
  8. ACETAMINOPHEN [Concomitant]
     Route: 048
     Dates: start: 20120517
  9. VITANEURIN [Concomitant]
     Route: 048
  10. TELAVIC (TELAPREVIR) [Suspect]
     Indication: HEPATITIS C
     Route: 048
     Dates: start: 20120517, end: 20120606
  11. MUCODYNE [Concomitant]
     Route: 048

REACTIONS (2)
  - STEVENS-JOHNSON SYNDROME [None]
  - DRUG ERUPTION [None]
